FAERS Safety Report 12731397 (Version 1)
Quarter: 2016Q3

REPORT INFORMATION
  Report Type: Spontaneous
  Country: US (occurrence: US)
  Receive Date: 20160908
  Receipt Date: 20160908
  Transmission Date: 20161109
  Serious: Yes (Hospitalization, Disabling)
  Sender: FDA-Public Use
  Company Number: None

PATIENT
  Age: 52 Year
  Sex: Female

DRUGS (1)
  1. COPAXONE [Suspect]
     Active Substance: GLATIRAMER ACETATE
     Indication: MULTIPLE SCLEROSIS
     Route: 058
     Dates: start: 201607

REACTIONS (13)
  - Chest pain [None]
  - Cerebrovascular disorder [None]
  - Pain [None]
  - Crying [None]
  - Abasia [None]
  - Movement disorder [None]
  - Chest discomfort [None]
  - Contrast media reaction [None]
  - Pruritus generalised [None]
  - Muscle spasms [None]
  - Heart rate increased [None]
  - Fatigue [None]
  - Immediate post-injection reaction [None]

NARRATIVE: CASE EVENT DATE: 20160821
